FAERS Safety Report 8985022 (Version 2)
Quarter: 2013Q1

REPORT INFORMATION
  Report Type: Report from Study
  Country: AU (occurrence: AU)
  Receive Date: 20121225
  Receipt Date: 20130123
  Transmission Date: 20140127
  Serious: Yes (Hospitalization)
  Sender: FDA-Public Use
  Company Number: AU-BIOGENIDEC-2012BI062822

PATIENT
  Age: 40 Year
  Sex: Female

DRUGS (10)
  1. TYSABRI [Suspect]
     Indication: SECONDARY PROGRESSIVE MULTIPLE SCLEROSIS
     Route: 042
     Dates: start: 20090529
  2. SERTRALINE [Concomitant]
     Indication: DEPRESSION
     Route: 048
     Dates: start: 20110720
  3. FRUSEMIDE [Concomitant]
     Route: 048
     Dates: start: 20100615
  4. OXYCONTIN [Concomitant]
     Indication: PAIN
     Route: 048
     Dates: start: 20100224
  5. OXYNOM [Concomitant]
     Indication: PAIN
     Route: 048
     Dates: start: 20100224
  6. COLOXYL [Concomitant]
     Indication: CONSTIPATION
     Route: 048
     Dates: start: 20091028
  7. DUPHALAC [Concomitant]
     Indication: CONSTIPATION
     Dates: start: 20091028
  8. BACLOFEN [Concomitant]
     Indication: MUSCLE SPASMS
     Route: 048
     Dates: start: 20090513
  9. BACLOFEN [Concomitant]
     Indication: MUSCLE SPASMS
  10. DIAZEPAM [Concomitant]
     Indication: MUSCLE SPASMS
     Route: 048
     Dates: start: 20090513

REACTIONS (4)
  - Wound [Recovered/Resolved with Sequelae]
  - Affect lability [Recovered/Resolved with Sequelae]
  - Wound infection staphylococcal [Recovered/Resolved with Sequelae]
  - Bacterial disease carrier [Recovered/Resolved with Sequelae]
